FAERS Safety Report 11648094 (Version 1)
Quarter: 2015Q4

REPORT INFORMATION
  Report Type: Spontaneous
  Country: GB (occurrence: GB)
  Receive Date: 20151021
  Receipt Date: 20151021
  Transmission Date: 20160304
  Serious: Yes (Hospitalization, Other)
  Sender: FDA-Public Use
  Company Number: GB-BIOGENIDEC-2015BI141130

PATIENT
  Age: 20 Year
  Sex: Female

DRUGS (1)
  1. TYSABRI [Suspect]
     Active Substance: NATALIZUMAB
     Indication: ENCEPHALITIS AUTOIMMUNE
     Route: 042

REACTIONS (4)
  - Hepatic failure [Unknown]
  - Blood glucose decreased [Unknown]
  - Renal failure [Unknown]
  - Hepatotoxicity [Not Recovered/Not Resolved]
